FAERS Safety Report 24000480 (Version 3)
Quarter: 2025Q2

REPORT INFORMATION
  Report Type: Report from Study
  Country: CA (occurrence: CA)
  Receive Date: 20240621
  Receipt Date: 20250613
  Transmission Date: 20250717
  Serious: Yes (Other)
  Sender: TAKEDA
  Company Number: CA-TAKEDA-2024TUS024087

PATIENT
  Sex: Male

DRUGS (6)
  1. VEDOLIZUMAB [Suspect]
     Active Substance: VEDOLIZUMAB
     Indication: Colitis ulcerative
  2. VEDOLIZUMAB [Suspect]
     Active Substance: VEDOLIZUMAB
  3. PERINDOPRIL [Concomitant]
     Active Substance: PERINDOPRIL
     Indication: Blood pressure abnormal
  4. BISOPROLOL [Concomitant]
     Active Substance: BISOPROLOL
     Indication: Blood pressure abnormal
  5. MESALAMINE [Concomitant]
     Active Substance: MESALAMINE
     Dosage: 4 GRAM, QD
  6. PREDNISONE [Concomitant]
     Active Substance: PREDNISONE

REACTIONS (9)
  - Diabetes mellitus [Not Recovered/Not Resolved]
  - Vein disorder [Not Recovered/Not Resolved]
  - Diarrhoea [Unknown]
  - Joint swelling [Unknown]
  - Fall [Unknown]
  - Contusion [Unknown]
  - Joint injury [Unknown]
  - Rash [Not Recovered/Not Resolved]
  - Erythema [Not Recovered/Not Resolved]
